FAERS Safety Report 5117183-0 (Version None)
Quarter: 2006Q3

REPORT INFORMATION
  Report Type: 
  Country: None (occurrence: None)
  Receive Date: 20060926
  Receipt Date: 20060913
  Transmission Date: 20061208
  Serious: Yes (Other)
  Sender: FDA-Public Use
  Company Number: 2006110950

PATIENT
  Age: 80 Year
  Sex: Female

DRUGS (1)
  1. DETROL LA [Suspect]
     Indication: INCONTINENCE
     Dosage: 2 MG (2MG, 1 IN 1 D); ORAL
     Route: 048

REACTIONS (3)
  - COGNITIVE DISORDER [None]
  - DEMENTIA [None]
  - FEELING ABNORMAL [None]
